FAERS Safety Report 8266612-2 (Version None)
Quarter: 2012Q2

REPORT INFORMATION
  Report Type: 
  Country: None (occurrence: None)
  Receive Date: 20120406
  Receipt Date: 20120326
  Transmission Date: 20120825
  Serious: Yes (Hospitalization)
  Sender: FDA-Public Use
  Company Number: PH-BAXTER-2012BAX001314

PATIENT
  Sex: Female

DRUGS (2)
  1. DIANEAL PD2 WITH 4.25% DEXTROSE [Suspect]
     Route: 033
     Dates: start: 20110714
  2. DIANEAL PD-2 W/ DEXTROSE 1.5% [Suspect]
     Route: 033
     Dates: start: 20110714

REACTIONS (3)
  - INFECTIOUS PERITONITIS [None]
  - PYREXIA [None]
  - PERITONEAL DIALYSIS COMPLICATION [None]
